FAERS Safety Report 10003851 (Version 2)
Quarter: 2014Q1

REPORT INFORMATION
  Report Type: Spontaneous
  Country: US (occurrence: US)
  Receive Date: 20140312
  Receipt Date: 20140312
  Transmission Date: 20141002
  Serious: No
  Sender: FDA-Public Use
  Company Number: US-INCYTE CORPORATION-2013IN001455

PATIENT
  Age: 85 Year
  Sex: Male

DRUGS (5)
  1. JAKAFI [Suspect]
     Indication: MYELOFIBROSIS
     Dosage: 25 MG, BID
     Route: 048
     Dates: start: 20130612, end: 201307
  2. JAKAFI [Suspect]
     Dosage: 10 MG, BID
     Route: 048
     Dates: start: 2013
  3. JAKAFI [Suspect]
     Dosage: 20 MG, BID
     Dates: start: 2013
  4. DEXAMETHASONE [Concomitant]
     Dosage: 8 MG, QD
  5. NEURONTIN [Concomitant]

REACTIONS (4)
  - Weight decreased [Recovering/Resolving]
  - Weight increased [Recovered/Resolved]
  - Dizziness [Recovered/Resolved]
  - Anaemia [Not Recovered/Not Resolved]
